FAERS Safety Report 9125089 (Version 3)
Quarter: 2014Q2

REPORT INFORMATION
  Report Type: Report from Study
  Country: US (occurrence: US)
  Receive Date: 20130227
  Receipt Date: 20140610
  Transmission Date: 20141212
  Serious: Yes (Hospitalization)
  Sender: FDA-Public Use
  Company Number: PHEH2013US004705

PATIENT
  Age: 47 Year
  Sex: Female

DRUGS (2)
  1. SANDIMMUN [Suspect]
     Indication: RENAL TRANSPLANT
     Dosage: 300 MG, DAILY
     Route: 048
  2. SANDIMMUN [Suspect]
     Dosage: 25 MG, BID (2 CAPSULE TWICE DAILY)
     Route: 048

REACTIONS (5)
  - Diabetic complication [Unknown]
  - Bronchitis [Unknown]
  - Pneumonia [Unknown]
  - Memory impairment [Unknown]
  - Nasopharyngitis [Unknown]
